FAERS Safety Report 8125637-8 (Version None)
Quarter: 2012Q1

REPORT INFORMATION
  Report Type: 
  Country: None (occurrence: None)
  Receive Date: 20120206
  Receipt Date: 20120124
  Transmission Date: 20120608
  Serious: Yes (Death)
  Sender: FDA-Public Use
  Company Number: 1000027408

PATIENT
  Age: 76 Year
  Sex: Female

DRUGS (6)
  1. TRIMEPRAZINE TAB [Concomitant]
  2. LISINOPRIL [Concomitant]
  3. CHLORPROMAZINE HCL [Concomitant]
  4. MIRTAZAPINE [Concomitant]
  5. CHLORDIAZEPOXIDE [Concomitant]
  6. MEMANTINE HCL [Suspect]
     Indication: DEMENTIA
     Dosage: 20 MG (20 MG,1 IN 1 D),ORAL
     Route: 048

REACTIONS (1)
  - MALAISE [None]
